FAERS Safety Report 10285243 (Version 1)
Quarter: 2014Q3

REPORT INFORMATION
  Report Type: Spontaneous
  Country: FR (occurrence: FR)
  Receive Date: 20140708
  Receipt Date: 20140708
  Transmission Date: 20150326
  Serious: Yes (Hospitalization, Other)
  Sender: FDA-Public Use
  Company Number: FR-WATSON-2014-14456

PATIENT
  Age: 44 Year
  Sex: Female

DRUGS (1)
  1. ANAGRELIDE HYDROCHLORIDE (WATSON LABORATORIES) [Suspect]
     Active Substance: ANAGRELIDE HYDROCHLORIDE
     Indication: ESSENTIAL THROMBOCYTHAEMIA
     Dosage: 2 MG, DAILY
     Route: 065
     Dates: start: 201204

REACTIONS (5)
  - Myocarditis [None]
  - Coronary artery thrombosis [None]
  - Gastroenteritis [None]
  - Acute myocardial infarction [Recovered/Resolved]
  - Coronary artery stenosis [None]

NARRATIVE: CASE EVENT DATE: 201207
